FAERS Safety Report 23565781 (Version 1)
Quarter: 2024Q1

REPORT INFORMATION
  Report Type: Spontaneous
  Country: US (occurrence: None)
  Receive Date: 20240224
  Receipt Date: 20240224
  Transmission Date: 20240410
  Serious: Yes (Disabling)
  Sender: FDA-Public Use
  Company Number: None

PATIENT
  Age: 69 Year
  Sex: Female
  Weight: 63 kg

DRUGS (1)
  1. CHOLESTYRAMINE [Suspect]
     Active Substance: CHOLESTYRAMINE
     Indication: Product used for unknown indication
     Dosage: OTHER QUANTITY : 6 2 PACKETS;?FREQUENCY : 3 TIMES A DAY;?OTHER ROUTE : 2 PACKETS MIXED IN LIQUID;?
     Route: 050
     Dates: start: 20240204, end: 20240215

REACTIONS (3)
  - Groin pain [None]
  - Pain in extremity [None]
  - Middle insomnia [None]

NARRATIVE: CASE EVENT DATE: 20240208
